FAERS Safety Report 8022400-3 (Version None)
Quarter: 2012Q1

REPORT INFORMATION
  Report Type: 
  Country: None (occurrence: None)
  Receive Date: 20120104
  Receipt Date: 20120103
  Transmission Date: 20120608
  Serious: Yes (Hospitalization, Other)
  Sender: FDA-Public Use
  Company Number: US-ROCHE-552265

PATIENT
  Sex: Male
  Weight: 77.1 kg

DRUGS (7)
  1. ASPIRIN [Concomitant]
  2. ACCUTANE [Suspect]
     Route: 065
  3. ARISTOCORT [Concomitant]
  4. ACCUTANE [Suspect]
     Indication: ACNE
     Dosage: OTHER INDICATION: ROSACEA
     Route: 065
     Dates: start: 19920217, end: 19920715
  5. ACCUTANE [Suspect]
     Route: 065
     Dates: start: 19990914, end: 19991214
  6. BACTROBAN [Concomitant]
     Dosage: DOSE 15 GRAM X 5
  7. FLAGYL [Concomitant]
     Dosage: NOTE STATED HE WAS TAKING CONCOMITTANTLY DURING SECOND COURSE OF THERAPY(NO DATES PROVIDED)

REACTIONS (13)
  - IRON DEFICIENCY ANAEMIA [None]
  - ANAL FISSURE [None]
  - CROHN'S DISEASE [None]
  - POUCHITIS [None]
  - ACNE [None]
  - COLITIS [None]
  - RASH [None]
  - ANAL STENOSIS [None]
  - PROCTITIS [None]
  - INFLAMMATORY BOWEL DISEASE [None]
  - DEPRESSION [None]
  - COLITIS ULCERATIVE [None]
  - INTERVERTEBRAL DISC DEGENERATION [None]
